FAERS Safety Report 9154830 (Version 1)
Quarter: 2013Q1

REPORT INFORMATION
  Report Type: Spontaneous
  Country: US (occurrence: None)
  Receive Date: 20130205
  Receipt Date: 20130205
  Transmission Date: 20140127
  Serious: Yes (Other)
  Sender: FDA-Public Use
  Company Number: 2013P1001581

PATIENT
  Age: 85 Year
  Sex: Male

DRUGS (4)
  1. INFUMORPH [Suspect]
     Indication: PAIN
     Dates: end: 20130122
  2. INFUMORPH [Suspect]
     Indication: LUMBAR RADICULOPATHY
     Dates: end: 20130122
  3. BUPIVACAINE [Suspect]
     Indication: PAIN
     Dates: end: 20130122
  4. BUPIVACAINE [Suspect]
     Indication: LUMBAR RADICULOPATHY
     Dates: end: 20130122

REACTIONS (2)
  - Drug ineffective [None]
  - Device issue [None]
